FAERS Safety Report 20856187 (Version 2)
Quarter: 2022Q2

REPORT INFORMATION
  Report Type: Report from Study
  Country: MX (occurrence: MX)
  Receive Date: 20220520
  Receipt Date: 20220526
  Transmission Date: 20220721
  Serious: Yes (Life-Threatening, Hospitalization)
  Sender: FDA-Public Use
  Company Number: MX-PFIZER INC-202200720385

PATIENT
  Age: 65 Year
  Sex: Male
  Weight: 85 kg

DRUGS (10)
  1. MEROPENEM [Suspect]
     Active Substance: MEROPENEM
     Indication: Pneumonia
     Dosage: 1000 MG, 2X/DAY
     Route: 042
     Dates: start: 20220514
  2. MEROPENEM [Suspect]
     Active Substance: MEROPENEM
     Dosage: 1000 MG, 3X/DAY
  3. OMEPRAZOLE [Concomitant]
     Active Substance: OMEPRAZOLE
     Indication: Prophylaxis
     Dosage: 40 MG, DAILY
     Route: 042
     Dates: start: 20220513
  4. AMIODARONE [Concomitant]
     Active Substance: AMIODARONE
     Indication: Atrial fibrillation
     Dosage: 300 MG, SINGLE
     Route: 042
     Dates: start: 20220515, end: 20220515
  5. BUPRENORFINE CF [Concomitant]
     Indication: Sedation
     Dosage: 150 UG, 3X/DAY
     Dates: start: 20220513
  6. INSULIN NOS [Concomitant]
     Active Substance: INSULIN NOS
     Indication: Diabetes mellitus management
     Dosage: 100 IU, SINGLE
     Route: 058
     Dates: start: 20220515
  7. MIDAZOLAM [Concomitant]
     Active Substance: MIDAZOLAM
     Indication: Sedation
     Dosage: 200 MG, DAILY
     Route: 042
     Dates: start: 20220513
  8. LINEZOLID [Concomitant]
     Active Substance: LINEZOLID
     Indication: Bacterial infection
     Dosage: 600 MG, 2X/DAY
     Route: 042
     Dates: start: 20220516, end: 20220516
  9. ATRACURIUM [Concomitant]
     Active Substance: ATRACURIUM
     Indication: Sedation
     Dosage: 200 MG, DAILY
     Route: 042
     Dates: start: 20220513
  10. NOREPINEFRINE [Concomitant]
     Indication: Haemodynamic instability
     Dosage: 32 MG, DAILY
     Route: 042
     Dates: start: 20220515

REACTIONS (1)
  - Shock [Recovering/Resolving]

NARRATIVE: CASE EVENT DATE: 20220515
